FAERS Safety Report 20429892 (Version 1)
Quarter: 2022Q1

REPORT INFORMATION
  Report Type: Report from Study
  Country: FR (occurrence: FR)
  Receive Date: 20220204
  Receipt Date: 20220204
  Transmission Date: 20220423
  Serious: Yes (Other)
  Sender: FDA-Public Use
  Company Number: FR-SERVIER-S18010976

PATIENT

DRUGS (16)
  1. ONCASPAR [Suspect]
     Active Substance: PEGASPARGASE
     Indication: Acute lymphocytic leukaemia
     Dosage: 4650 IU, ON D12, D26
     Route: 042
     Dates: start: 20181113, end: 20181127
  2. ONCASPAR [Suspect]
     Active Substance: PEGASPARGASE
     Dosage: 4350 IU, ON D15, D43,
     Route: 042
     Dates: start: 20190103, end: 20190203
  3. TN UNSPECIFIED [Concomitant]
     Indication: Acute lymphocytic leukaemia
     Dosage: 110 MG QD FROM D8 TO D28
     Route: 048
     Dates: start: 20181109, end: 20181129
  4. TN UNSPECIFIED [Concomitant]
     Indication: Acute lymphocytic leukaemia
     Dosage: 75 MG, ON D8, D15, D22, D29
     Route: 042
     Dates: start: 20181109, end: 20181201
  5. TN UNSPECIFIED [Concomitant]
     Indication: Acute lymphocytic leukaemia
     Dosage: 15 MG, ON D9, D18, D24
     Route: 037
     Dates: start: 20181110, end: 20181126
  6. TN UNSPECIFIED [Concomitant]
     Dosage: 15 MG, ON D3, D16, D31, D46
     Route: 037
     Dates: start: 20181222, end: 20190206
  7. TN UNSPECIFIED [Concomitant]
     Indication: Acute lymphocytic leukaemia
     Dosage: 30 MG, ON D9, D18, D24
     Route: 037
     Dates: start: 20181110, end: 20181126
  8. TN UNSPECIFIED [Concomitant]
     Dosage: 130 MG, QD FROM D3 TO D3 AND FROM D10 TO D13
     Route: 042
     Dates: start: 20181222, end: 20190204
  9. TN UNSPECIFIED [Concomitant]
     Dosage: 30 MG, ON D3, D16, D31, D46
     Route: 037
     Dates: start: 20181222, end: 20190206
  10. TN UNSPECIFIED [Concomitant]
     Indication: Acute lymphocytic leukaemia
     Dosage: 15 MG, ON D9, D18, D24
     Route: 037
     Dates: start: 20181110, end: 20181126
  11. TN UNSPECIFIED [Concomitant]
     Dosage: 15 MG, ON D3, D16, D31, D46
     Route: 037
     Dates: start: 20181222, end: 20190206
  12. TN UNSPECIFIED [Concomitant]
     Indication: Acute lymphocytic leukaemia
     Dosage: 1860 MG, ON D29
     Route: 042
     Dates: start: 20181129
  13. TN UNSPECIFIED [Concomitant]
     Dosage: 1740 MG, ON D1, D29
     Route: 042
     Dates: start: 20181220, end: 20190118
  14. TN UNSPECIFIED [Concomitant]
     Indication: Acute lymphocytic leukaemia
     Dosage: 100 MG
     Route: 048
     Dates: start: 20181220, end: 20190131
  15. TN UNSPECIFIED [Concomitant]
     Indication: Acute lymphocytic leukaemia
     Dosage: 2 MG, ON D8, D15, D22, D29
     Route: 042
     Dates: start: 20181109, end: 20181203
  16. TN UNSPECIFIED [Concomitant]
     Dosage: 2 MG, ON D15, D22, D43, D50
     Route: 042
     Dates: start: 20190103, end: 20190203

REACTIONS (1)
  - Cholestasis [Recovered/Resolved]

NARRATIVE: CASE EVENT DATE: 20190208
